FAERS Safety Report 12495520 (Version 2)
Quarter: 2016Q4

REPORT INFORMATION
  Report Type: Report from Study
  Country: LV (occurrence: LV)
  Receive Date: 20160624
  Receipt Date: 20161018
  Transmission Date: 20170207
  Serious: Yes (Hospitalization)
  Sender: FDA-Public Use
  Company Number: LV-ASTRAZENECA-2016SE67753

PATIENT
  Age: 17927 Day
  Sex: Male
  Weight: 110 kg

DRUGS (14)
  1. OMEPRAZOL [Suspect]
     Active Substance: OMEPRAZOLE
     Indication: PROPHYLAXIS
     Route: 048
     Dates: start: 20150625, end: 20150629
  2. BROMAZEPAM [Suspect]
     Active Substance: BROMAZEPAM
     Indication: SEDATIVE THERAPY
     Route: 065
     Dates: start: 20150625, end: 20150629
  3. BETALOC ZOK [Concomitant]
     Active Substance: METOPROLOL SUCCINATE
     Indication: CORONARY ARTERY DISEASE
     Route: 048
     Dates: start: 2010
  4. KETANOV [Suspect]
     Active Substance: KETOROLAC\KETOROLAC TROMETHAMINE
     Indication: ANALGESIC THERAPY
     Route: 042
     Dates: start: 20150625, end: 20150629
  5. FELORAN [Suspect]
     Active Substance: DICLOFENAC SODIUM
     Indication: ANALGESIC THERAPY
     Route: 030
     Dates: start: 20150625, end: 20150628
  6. PRADAXA [Suspect]
     Active Substance: DABIGATRAN ETEXILATE MESYLATE
     Indication: THROMBOSIS PROPHYLAXIS
     Route: 048
     Dates: start: 20150625, end: 20150703
  7. ASPIRIN. [Concomitant]
     Active Substance: ASPIRIN
     Indication: CORONARY ARTERY DISEASE
     Route: 048
     Dates: start: 2010
  8. INSULIN INSUMAN BASAL [Concomitant]
     Indication: DIABETES MELLITUS
     Route: 058
     Dates: start: 20131009
  9. BYDUREON [Suspect]
     Active Substance: EXENATIDE
     Indication: TYPE 2 DIABETES MELLITUS
     Route: 058
     Dates: start: 20120305
  10. ANALGIN [Suspect]
     Active Substance: METAMIZOLE SODIUM
     Indication: ANALGESIC THERAPY
     Route: 065
     Dates: start: 20150625, end: 20150628
  11. METFORMIN [Concomitant]
     Active Substance: METFORMIN HYDROCHLORIDE
     Indication: DIABETES MELLITUS
     Route: 048
     Dates: start: 2008
  12. TRAMADOL. [Suspect]
     Active Substance: TRAMADOL
     Indication: ANALGESIC THERAPY
     Route: 048
     Dates: start: 20150625, end: 20150626
  13. VILDAGLIPTIN [Concomitant]
     Active Substance: VILDAGLIPTIN
     Indication: DIABETES MELLITUS
     Route: 048
     Dates: start: 20140910
  14. ROSUVASTATIN. [Concomitant]
     Active Substance: ROSUVASTATIN
     Indication: DYSLIPIDAEMIA
     Route: 048
     Dates: start: 2010

REACTIONS (1)
  - Lower limb fracture [Recovered/Resolved]

NARRATIVE: CASE EVENT DATE: 20150625
